FAERS Safety Report 11234827 (Version 2)
Quarter: 2015Q4

REPORT INFORMATION
  Report Type: Spontaneous
  Country: US (occurrence: US)
  Receive Date: 20150702
  Receipt Date: 20151102
  Transmission Date: 20160304
  Serious: Yes (Hospitalization, Other)
  Sender: FDA-Public Use
  Company Number: US-DSJP-DSU-2015-120457

PATIENT

DRUGS (5)
  1. BENICAR HCT [Suspect]
     Active Substance: HYDROCHLOROTHIAZIDE\OLMESARTAN MEDOXOMIL
     Indication: HYPERTENSION
     Dosage: 40/25 MG
     Route: 048
     Dates: start: 200810, end: 201207
  2. BENICAR [Suspect]
     Active Substance: OLMESARTAN MEDOXOMIL
     Dosage: 20 MG, UNK
     Route: 048
     Dates: start: 20140611, end: 20140805
  3. HYDROCHLOROTHIAZIDE. [Concomitant]
     Active Substance: HYDROCHLOROTHIAZIDE
     Indication: PRODUCT USED FOR UNKNOWN INDICATION
     Dosage: 12.5 MG TO 25 MG, QD
     Dates: start: 200901, end: 201401
  4. BENICAR [Suspect]
     Active Substance: OLMESARTAN MEDOXOMIL
     Indication: HYPERTENSION
     Dosage: 40 MG, UNK
     Route: 048
     Dates: start: 201208, end: 20140611
  5. NSAID^S [Concomitant]
     Active Substance: UNSPECIFIED INGREDIENT
     Indication: PRODUCT USED FOR UNKNOWN INDICATION
     Dosage: UNK
     Dates: start: 2005, end: 2015

REACTIONS (11)
  - Acute kidney injury [Unknown]
  - Malabsorption [Unknown]
  - Presyncope [Recovered/Resolved]
  - Hiatus hernia [Unknown]
  - Gastritis [Unknown]
  - Proctalgia [Unknown]
  - Anal spasm [Recovered/Resolved]
  - Haemorrhoids [Unknown]
  - Metabolic acidosis [Unknown]
  - Hypotension [Unknown]
  - Diverticulum [Unknown]

NARRATIVE: CASE EVENT DATE: 201309
